FAERS Safety Report 9320639 (Version 6)
Quarter: 2013Q4

REPORT INFORMATION
  Report Type: Spontaneous
  Country: JP (occurrence: JP)
  Receive Date: 20130531
  Receipt Date: 20131002
  Transmission Date: 20140711
  Serious: Yes (Hospitalization, Disabling, Other)
  Sender: FDA-Public Use
  Company Number: JP-ROCHE-1229654

PATIENT
  Age: 39 Year
  Sex: Male
  Weight: 118 kg

DRUGS (14)
  1. ACTEMRA [Suspect]
     Indication: CASTLEMAN^S DISEASE
     Route: 041
     Dates: start: 20130424, end: 20130424
  2. TAKEPRON [Suspect]
     Indication: PROPHYLAXIS
     Route: 048
     Dates: start: 20130417, end: 20130502
  3. PLETAAL [Suspect]
     Indication: CEREBRAL INFARCTION
     Route: 048
     Dates: start: 20130408, end: 20130502
  4. AMLODIN [Suspect]
     Indication: HYPERTENSION
     Route: 048
     Dates: start: 20130419, end: 20130502
  5. FEBURIC [Suspect]
     Indication: HYPERURICAEMIA
     Route: 048
     Dates: start: 20130421, end: 20130426
  6. PREDONINE [Concomitant]
     Indication: CASTLEMAN^S DISEASE
     Route: 065
     Dates: start: 20130417, end: 20130426
  7. PREDONINE [Concomitant]
     Indication: CASTLEMAN^S DISEASE
     Route: 065
     Dates: start: 20130427, end: 20130502
  8. PREDONINE [Concomitant]
     Indication: CASTLEMAN^S DISEASE
     Route: 065
     Dates: start: 20130503, end: 20130509
  9. PREDONINE [Concomitant]
     Indication: CASTLEMAN^S DISEASE
     Route: 065
     Dates: start: 20130510, end: 20130516
  10. PREDONINE [Concomitant]
     Indication: CASTLEMAN^S DISEASE
     Route: 065
     Dates: start: 20130517
  11. CONIEL [Concomitant]
     Indication: HYPERTENSION
     Route: 048
     Dates: start: 20130401
  12. DIOVAN [Concomitant]
     Indication: HYPERTENSION
     Route: 048
     Dates: start: 20130408
  13. LASIX [Concomitant]
     Indication: CASTLEMAN^S DISEASE
     Route: 048
     Dates: start: 20130401
  14. WARFARIN [Concomitant]
     Indication: CEREBRAL INFARCTION
     Route: 048
     Dates: start: 20130401, end: 20130502

REACTIONS (6)
  - Hepatic function abnormal [Recovered/Resolved]
  - Abnormal clotting factor [Not Recovered/Not Resolved]
  - Platelet count decreased [Not Recovered/Not Resolved]
  - Ascites [Recovered/Resolved]
  - Oedema peripheral [Recovered/Resolved]
  - Anaemia [Unknown]
